FAERS Safety Report 9695610 (Version 1)
Quarter: 2013Q4

REPORT INFORMATION
  Report Type: Spontaneous
  Country: CA (occurrence: CA)
  Receive Date: 20131119
  Receipt Date: 20131119
  Transmission Date: 20140711
  Serious: Yes (Disabling)
  Sender: FDA-Public Use
  Company Number: CA-ASTRAZENECA-2013SE83306

PATIENT
  Age: 73 Year
  Sex: Female

DRUGS (12)
  1. CRESTOR [Suspect]
     Route: 048
  2. ASPIRIN [Concomitant]
  3. CALCIUM AND MAGNESIUM [Concomitant]
  4. GINSENG [Concomitant]
  5. KELP [Concomitant]
  6. KRILL OIL [Concomitant]
  7. PRIMROSE OIL [Concomitant]
  8. SELENIUM [Concomitant]
  9. VITALUX [Concomitant]
  10. VITAMIN B COMPLEX [Concomitant]
  11. VITAMIN C [Concomitant]
  12. VITAMIN D [Concomitant]

REACTIONS (3)
  - Gait disturbance [Unknown]
  - Arthralgia [Unknown]
  - Fatigue [Unknown]
